FAERS Safety Report 9540678 (Version 4)
Quarter: 2014Q2

REPORT INFORMATION
  Report Type: Spontaneous
  Country: US (occurrence: US)
  Receive Date: 20130920
  Receipt Date: 20140502
  Transmission Date: 20141212
  Serious: Yes (Hospitalization)
  Sender: FDA-Public Use
  Company Number: US-B.I. PHARMACEUTICALS,INC./RIDGEFIELD-2013-BI-29174BP

PATIENT
  Age: 45 Year
  Sex: Male
  Weight: 70.31 kg

DRUGS (6)
  1. PRADAXA [Suspect]
     Indication: ATRIAL FIBRILLATION
     Dosage: 300 MG
     Route: 048
     Dates: start: 20110516, end: 20110621
  2. LOW DOSE ASPIRIN [Concomitant]
     Route: 065
  3. PERCOCET [Concomitant]
     Route: 065
  4. SUCRALFATE [Concomitant]
     Route: 065
  5. PACERONE [Concomitant]
     Route: 065
  6. LANSOPRAZOLE [Concomitant]
     Route: 065

REACTIONS (1)
  - Pulmonary haemorrhage [Unknown]
